FAERS Safety Report 4949704-2 (Version None)
Quarter: 2006Q1

REPORT INFORMATION
  Report Type: 
  Country: None (occurrence: None)
  Receive Date: 20060315
  Receipt Date: 20020722
  Transmission Date: 20060701
  Serious: No
  Sender: FDA-Public Use
  Company Number: 2005SS000604

PATIENT
  Age: 45 Year
  Sex: Female

DRUGS (3)
  1. MYOBLOC (BOTULINUM TOXIN TYPE B) [Suspect]
     Indication: MUSCLE SPASMS
     Dosage: 10000 U; IM
     Route: 030
     Dates: start: 20020703, end: 20020703
  2. ZANAFLEX [Concomitant]
  3. BEXTRA [Concomitant]

REACTIONS (6)
  - DEPRESSIVE SYMPTOM [None]
  - DRY MOUTH [None]
  - DYSURIA [None]
  - INFREQUENT BOWEL MOVEMENTS [None]
  - LACRIMATION DECREASED [None]
  - VISION BLURRED [None]
